FAERS Safety Report 10278757 (Version 2)
Quarter: 2015Q3

REPORT INFORMATION
  Report Type: Report from Study
  Country: US (occurrence: US)
  Receive Date: 20140705
  Receipt Date: 20150710
  Transmission Date: 20151125
  Serious: Yes (Death, Hospitalization, Other)
  Sender: FDA-Public Use
  Company Number: US-ALEXION PHARMACEUTICALS INC.-A201402539

PATIENT

DRUGS (1)
  1. SOLIRIS [Suspect]
     Active Substance: ECULIZUMAB
     Indication: HAEMOLYTIC URAEMIC SYNDROME
     Dosage: UNK
     Route: 042
     Dates: end: 20150406

REACTIONS (5)
  - Death [Fatal]
  - Fluid overload [Unknown]
  - Respiratory distress [Unknown]
  - Unevaluable event [Unknown]
  - Treatment noncompliance [Unknown]
